FAERS Safety Report 21039723 (Version 3)
Quarter: 2022Q3

REPORT INFORMATION
  Report Type: Report from Study
  Country: AU (occurrence: AU)
  Receive Date: 20220704
  Receipt Date: 20220803
  Transmission Date: 20221027
  Serious: Yes (Death)
  Sender: FDA-Public Use
  Company Number: AU-AstraZeneca-2022A239348

PATIENT
  Sex: Female

DRUGS (1)
  1. ENHERTU [Suspect]
     Active Substance: FAM-TRASTUZUMAB DERUXTECAN-NXKI
     Indication: Breast cancer metastatic
     Dosage: 5.4 MG/KG 3 WEEKLY
     Route: 042
     Dates: start: 20220629

REACTIONS (5)
  - Pulmonary toxicity [Fatal]
  - Pneumonitis [Fatal]
  - Interstitial lung disease [Fatal]
  - Respiratory syncytial virus infection [Fatal]
  - Pneumocystis jirovecii pneumonia [Fatal]
